FAERS Safety Report 15683915 (Version 8)
Quarter: 2024Q3

REPORT INFORMATION
  Report Type: Report from Study
  Country: CA (occurrence: CA)
  Receive Date: 20181204
  Receipt Date: 20240710
  Transmission Date: 20241017
  Serious: Yes (Hospitalization, Other)
  Sender: ROCHE
  Company Number: CA-002147023-PHHY2018CA027633

PATIENT
  Age: 58 Year
  Sex: Male

DRUGS (27)
  1. XOLAIR [Suspect]
     Active Substance: OMALIZUMAB
     Indication: Asthma
     Route: 058
     Dates: start: 20170316
  2. XOLAIR [Suspect]
     Active Substance: OMALIZUMAB
     Route: 058
     Dates: start: 20181114
  3. XOLAIR [Suspect]
     Active Substance: OMALIZUMAB
     Route: 058
     Dates: start: 20200116
  4. XOLAIR [Suspect]
     Active Substance: OMALIZUMAB
     Route: 058
     Dates: start: 20200130
  5. XOLAIR [Suspect]
     Active Substance: OMALIZUMAB
     Route: 058
     Dates: start: 20200214
  6. XOLAIR [Suspect]
     Active Substance: OMALIZUMAB
     Route: 058
     Dates: start: 20200403
  7. XOLAIR [Suspect]
     Active Substance: OMALIZUMAB
     Route: 058
     Dates: start: 20200505
  8. XOLAIR [Suspect]
     Active Substance: OMALIZUMAB
     Route: 058
     Dates: start: 20200507
  9. XOLAIR [Suspect]
     Active Substance: OMALIZUMAB
     Route: 058
  10. XOLAIR [Suspect]
     Active Substance: OMALIZUMAB
     Route: 058
  11. XOLAIR [Suspect]
     Active Substance: OMALIZUMAB
     Dosage: 300 MG, QMO
     Route: 058
  12. XOLAIR [Suspect]
     Active Substance: OMALIZUMAB
     Dosage: 300 MG, BIW
     Route: 058
  13. XOLAIR [Suspect]
     Active Substance: OMALIZUMAB
     Route: 058
     Dates: start: 20211008
  14. XOLAIR [Suspect]
     Active Substance: OMALIZUMAB
     Route: 058
     Dates: start: 20211126
  15. XOLAIR [Suspect]
     Active Substance: OMALIZUMAB
     Route: 058
  16. XOLAIR [Suspect]
     Active Substance: OMALIZUMAB
     Route: 058
  17. VALSARTAN [Concomitant]
     Active Substance: VALSARTAN
     Indication: Product used for unknown indication
     Route: 048
     Dates: start: 20161019
  18. ZOPICLONE [Concomitant]
     Active Substance: ZOPICLONE
     Indication: Product used for unknown indication
     Route: 065
  19. VENTOLIN [Concomitant]
     Active Substance: ALBUTEROL SULFATE
     Indication: Product used for unknown indication
     Dosage: FREQUENCY TEXT:AS REQUIRED
     Route: 055
  20. SPIRIVA [Concomitant]
     Active Substance: TIOTROPIUM BROMIDE MONOHYDRATE
     Indication: Product used for unknown indication
     Route: 055
  21. SINGULAIR [Concomitant]
     Active Substance: MONTELUKAST SODIUM
     Indication: Product used for unknown indication
     Route: 048
  22. WELLBUTRIN [Concomitant]
     Active Substance: BUPROPION HYDROCHLORIDE
     Indication: Product used for unknown indication
     Route: 065
  23. PANTOPRAZOLE [Concomitant]
     Active Substance: PANTOPRAZOLE
     Indication: Product used for unknown indication
     Route: 065
  24. PERINDOPRIL [Concomitant]
     Active Substance: PERINDOPRIL
     Indication: Product used for unknown indication
     Route: 065
  25. MONTELUKAST [Concomitant]
     Active Substance: MONTELUKAST SODIUM
     Indication: Product used for unknown indication
     Route: 065
  26. BREO ELLIPTA [Concomitant]
     Active Substance: FLUTICASONE FUROATE\VILANTEROL TRIFENATATE
     Indication: Product used for unknown indication
     Route: 055
  27. SYNTHROID [Concomitant]
     Active Substance: LEVOTHYROXINE SODIUM

REACTIONS (47)
  - Rib fracture [Unknown]
  - Fall [Unknown]
  - Type 2 diabetes mellitus [Unknown]
  - Malignant melanoma [Unknown]
  - Tendonitis [Unknown]
  - Blood immunoglobulin E increased [Unknown]
  - Forced expiratory volume decreased [Unknown]
  - Weight decreased [Unknown]
  - Pulmonary vascular disorder [Unknown]
  - Carboxyhaemoglobin increased [Unknown]
  - Obstructive airways disorder [Unknown]
  - Lung diffusion test decreased [Unknown]
  - Rhonchi [Unknown]
  - Emphysema [Unknown]
  - Anaemia [Unknown]
  - Bronchial wall thickening [Unknown]
  - Dyspnoea exertional [Not Recovered/Not Resolved]
  - Temperature intolerance [Not Recovered/Not Resolved]
  - Middle insomnia [Unknown]
  - Chest discomfort [Unknown]
  - Oropharyngeal discomfort [Unknown]
  - Sensitivity to weather change [Unknown]
  - Perfume sensitivity [Unknown]
  - Malaise [Unknown]
  - Visual impairment [Recovering/Resolving]
  - Oropharyngeal pain [Unknown]
  - Rhinorrhoea [Not Recovered/Not Resolved]
  - Abdominal discomfort [Unknown]
  - Night sweats [Unknown]
  - Productive cough [Unknown]
  - Panic attack [Unknown]
  - COVID-19 [Unknown]
  - Vision blurred [Not Recovered/Not Resolved]
  - Tinnitus [Unknown]
  - Insomnia [Unknown]
  - Myalgia [Unknown]
  - Asthenia [Unknown]
  - Fatigue [Unknown]
  - Asthma [Unknown]
  - Wheezing [Not Recovered/Not Resolved]
  - Dyspnoea [Recovering/Resolving]
  - Cough [Not Recovered/Not Resolved]
  - Sleep disorder [Unknown]
  - Discomfort [Unknown]
  - Dizziness [Unknown]
  - Product dose omission issue [Unknown]
  - Upper limb fracture [Unknown]

NARRATIVE: CASE EVENT DATE: 20180207
